FAERS Safety Report 9099940 (Version 1)
Quarter: 2013Q1

REPORT INFORMATION
  Report Type: Spontaneous
  Country: GR (occurrence: GR)
  Receive Date: 20130215
  Receipt Date: 20130215
  Transmission Date: 20140127
  Serious: Yes (Other)
  Sender: FDA-Public Use
  Company Number: GR-CELGENEUS-066-50794-13020971

PATIENT
  Sex: 0

DRUGS (1)
  1. VIDAZA [Suspect]
     Indication: MYELODYSPLASTIC SYNDROME
     Route: 065

REACTIONS (5)
  - Thrombocytosis [Unknown]
  - Acute myeloid leukaemia [Unknown]
  - White blood cell count increased [Unknown]
  - Bone marrow reticulin fibrosis [Unknown]
  - Janus kinase 2 mutation [Unknown]
